FAERS Safety Report 7999826-7 (Version None)
Quarter: 2011Q4

REPORT INFORMATION
  Report Type: 
  Country: None (occurrence: None)
  Receive Date: 20111222
  Receipt Date: 20111216
  Transmission Date: 20120403
  Serious: Yes (Other)
  Sender: FDA-Public Use
  Company Number: US-BIOGENIDEC-2011BI047826

PATIENT
  Age: 37 Year
  Sex: Female

DRUGS (4)
  1. AVONEX [Suspect]
     Route: 030
     Dates: end: 20060101
  2. AVONEX [Suspect]
     Indication: MULTIPLE SCLEROSIS
     Route: 030
     Dates: start: 19970101
  3. BENADRYL [Concomitant]
     Indication: PREMEDICATION
     Dates: start: 19970101
  4. IBUPROFEN [Concomitant]
     Indication: PREMEDICATION
     Dates: start: 19970101

REACTIONS (7)
  - PETIT MAL EPILEPSY [None]
  - FATIGUE [None]
  - NAUSEA [None]
  - FLUSHING [None]
  - PYREXIA [None]
  - ASTHENIA [None]
  - PAIN [None]
